FAERS Safety Report 16952251 (Version 1)
Quarter: 2019Q4

REPORT INFORMATION
  Report Type: Spontaneous
  Country: US (occurrence: US)
  Receive Date: 20191023
  Receipt Date: 20191023
  Transmission Date: 20200122
  Serious: Yes (Hospitalization)
  Sender: FDA-Public Use
  Company Number: US-SEBELA IRELAND LIMITED-2019SEB00226

PATIENT
  Age: 47 Year
  Sex: Male

DRUGS (7)
  1. IMURAN [Suspect]
     Active Substance: AZATHIOPRINE
     Dosage: UNK
     Dates: start: 201907
  2. IMURAN [Suspect]
     Active Substance: AZATHIOPRINE
     Indication: CROHN^S DISEASE
     Dosage: UNK
  3. ENTYVIO [Suspect]
     Active Substance: VEDOLIZUMAB
     Dosage: SECOND DOSE
     Route: 042
     Dates: start: 2019, end: 2019
  4. ENTYVIO [Suspect]
     Active Substance: VEDOLIZUMAB
     Dosage: THIRD DOSE
     Route: 042
     Dates: start: 20190704, end: 20190704
  5. PREDNISONE. [Concomitant]
     Active Substance: PREDNISONE
  6. ENTYVIO [Suspect]
     Active Substance: VEDOLIZUMAB
     Dosage: FOURTH DOSE
     Route: 042
     Dates: start: 20190830, end: 20190830
  7. ENTYVIO [Suspect]
     Active Substance: VEDOLIZUMAB
     Indication: CROHN^S DISEASE
     Dosage: FIRST DOSE
     Route: 042
     Dates: start: 20190524, end: 20190524

REACTIONS (2)
  - Cardiomyopathy [Unknown]
  - Ventricular tachycardia [Unknown]

NARRATIVE: CASE EVENT DATE: 201909
